FAERS Safety Report 8596480-0 (Version None)
Quarter: 2012Q3

REPORT INFORMATION
  Report Type: 
  Country: None (occurrence: None)
  Receive Date: 20120815
  Receipt Date: 20120813
  Transmission Date: 20120928
  Serious: No
  Sender: FDA-Public Use
  Company Number: US-ACTELION-A-NJ2012-69680

PATIENT
  Age: 68 Year
  Sex: Female

DRUGS (3)
  1. ADCIRCA [Concomitant]
  2. TRACLEER [Suspect]
     Indication: PULMONARY ARTERIAL HYPERTENSION
     Dosage: UNK
     Route: 048
     Dates: start: 20120606, end: 20120718
  3. COUMADIN [Concomitant]

REACTIONS (6)
  - ABDOMINAL PAIN UPPER [None]
  - VIRAL INFECTION [None]
  - VOMITING [None]
  - DIARRHOEA [None]
  - DEHYDRATION [None]
  - FEELING ABNORMAL [None]
